FAERS Safety Report 7048537-3 (Version None)
Quarter: 2010Q4

REPORT INFORMATION
  Report Type: 
  Country: None (occurrence: None)
  Receive Date: 20101007
  Receipt Date: 20100923
  Transmission Date: 20110411
  Serious: Yes (Hospitalization, Disabling)
  Sender: FDA-Public Use
  Company Number: 2010SP050757

PATIENT
  Age: 33 Year
  Sex: Female
  Weight: 58.9676 kg

DRUGS (6)
  1. NUVARING [Suspect]
     Indication: CONTRACEPTION
     Dates: start: 20061201, end: 20080101
  2. PROVENTIL [Concomitant]
  3. PROTEIN [Concomitant]
  4. CENTRUM [Concomitant]
  5. IRON [Concomitant]
  6. VITAMIN B-12 [Concomitant]

REACTIONS (2)
  - DEEP VEIN THROMBOSIS [None]
  - JOINT INJURY [None]
